FAERS Safety Report 14754942 (Version 1)
Quarter: 2018Q2

REPORT INFORMATION
  Report Type: Spontaneous
  Country: FR (occurrence: FR)
  Receive Date: 20180413
  Receipt Date: 20180413
  Transmission Date: 20180711
  Serious: Yes (Life-Threatening)
  Sender: FDA-Public Use
  Company Number: FR-TEVA-2018-FR-880997

PATIENT
  Age: 58 Year
  Sex: Male
  Weight: 76 kg

DRUGS (5)
  1. UROMITEXAN [Concomitant]
     Active Substance: MESNA
     Indication: PROPHYLAXIS
     Dosage: 50 MG/KG DAILY;
  2. CYTARABINE SANDOZ 100 MG/ML, SOLUTION INJECTABLE [Suspect]
     Active Substance: CYTARABINE
     Indication: B-CELL LYMPHOMA STAGE IV
     Route: 042
  3. ENDOXAN [Suspect]
     Active Substance: CYCLOPHOSPHAMIDE
     Indication: B-CELL LYMPHOMA STAGE IV
     Dosage: 35 MG/KG DAILY;
     Route: 042
  4. ETOPOSIDE TEVA [Suspect]
     Active Substance: ETOPOSIDE
     Indication: B-CELL LYMPHOMA STAGE IV
     Route: 042
  5. BICNU [Suspect]
     Active Substance: CARMUSTINE
     Indication: B-CELL LYMPHOMA STAGE IV
     Route: 042

REACTIONS (1)
  - Sepsis syndrome [Recovering/Resolving]
